FAERS Safety Report 5614008-1 (Version None)
Quarter: 2008Q1

REPORT INFORMATION
  Report Type: 
  Country: None (occurrence: None)
  Receive Date: 20080130
  Receipt Date: 20050207
  Transmission Date: 20080703
  Serious: Yes (Hospitalization)
  Sender: FDA-Public Use
  Company Number: US022324

PATIENT
  Sex: Female

DRUGS (8)
  1. PROVIGIL [Suspect]
     Dosage: ORAL
     Route: 048
  2. KLONOPIN [Concomitant]
  3. NAMENDA [Concomitant]
  4. PERMAX [Concomitant]
  5. EXELON [Concomitant]
  6. LEXAPRO [Concomitant]
  7. TRAZODONE HCL [Concomitant]
  8. WELLBUTRIN [Concomitant]

REACTIONS (3)
  - DRUG ABUSE [None]
  - DRUG SCREEN POSITIVE [None]
  - MENTAL STATUS CHANGES [None]
